FAERS Safety Report 6127784-9 (Version None)
Quarter: 2009Q1

REPORT INFORMATION
  Report Type: 
  Country: None (occurrence: None)
  Receive Date: 20090320
  Receipt Date: 20090320
  Transmission Date: 20090719
  Serious: Yes (Other)
  Sender: FDA-Public Use
  Company Number: None

PATIENT
  Age: 32 Year
  Sex: Female
  Weight: 80 kg

DRUGS (2)
  1. ZOLOFT [Suspect]
     Indication: MAJOR DEPRESSION
     Dosage: 250 MG DAILY 047 ORAL MID 2005 TO SEPT 2007
     Route: 048
     Dates: start: 20050101, end: 20070901
  2. EFFEXOR [Concomitant]

REACTIONS (1)
  - ENURESIS [None]
